FAERS Safety Report 4315726-8 (Version None)
Quarter: 2004Q1

REPORT INFORMATION
  Report Type: 
  Country: None (occurrence: None)
  Receive Date: 20040303
  Receipt Date: 20031003
  Transmission Date: 20041129
  Serious: Yes (Hospitalization, Other)
  Sender: FDA-Public Use
  Company Number: 200325381BWH

PATIENT

DRUGS (1)
  1. TRASYLOL [Suspect]

REACTIONS (2)
  - CATHETER RELATED COMPLICATION [None]
  - THROMBOSIS [None]
